FAERS Safety Report 19761720 (Version 1)
Quarter: 2021Q3

REPORT INFORMATION
  Report Type: Spontaneous
  Country: US (occurrence: US)
  Receive Date: 20210828
  Receipt Date: 20210828
  Transmission Date: 20211014
  Serious: Yes (Disabling)
  Sender: FDA-Public Use
  Company Number: None

PATIENT

DRUGS (1)
  1. METHYLPREDNISOLONE ACEPONATE [Suspect]
     Active Substance: METHYLPREDNISOLONE ACEPONATE

REACTIONS (5)
  - Erythema [None]
  - Skin atrophy [None]
  - Skin burning sensation [None]
  - Sensitive skin [None]
  - Pruritus [None]

NARRATIVE: CASE EVENT DATE: 20150606
